FAERS Safety Report 5677701-0 (Version None)
Quarter: 2008Q1

REPORT INFORMATION
  Report Type: 
  Country: None (occurrence: None)
  Receive Date: 20080324
  Receipt Date: 20080227
  Transmission Date: 20080703
  Serious: No
  Sender: FDA-Public Use
  Company Number: US-BOEHRINGER INGELHEIM GMBH, GERMANY-2008-BP-02981BP

PATIENT
  Age: 66 Year
  Sex: Female

DRUGS (11)
  1. CATAPRES-TTS-1 [Suspect]
     Indication: HYPERTENSION
     Route: 061
     Dates: start: 20030101
  2. ASPIRIN [Concomitant]
  3. PAPAVERINE SA [Concomitant]
  4. METOPROLOL SUCCINATE [Concomitant]
  5. FUROSEMIDE [Concomitant]
  6. SINGULAIR [Concomitant]
  7. ACTOS [Concomitant]
  8. AVAPRO [Concomitant]
  9. METFORMIN [Concomitant]
  10. SULAR [Concomitant]
  11. ACIPHEX [Concomitant]

REACTIONS (2)
  - APPLICATION SITE ERYTHEMA [None]
  - APPLICATION SITE RASH [None]
